FAERS Safety Report 20232471 (Version 1)
Quarter: 2021Q4

REPORT INFORMATION
  Report Type: Spontaneous
  Country: US (occurrence: US)
  Receive Date: 20211227
  Receipt Date: 20211227
  Transmission Date: 20220303
  Serious: Yes (Other)
  Sender: FDA-Public Use
  Company Number: US-GLAXOSMITHKLINE- US2021GSK261282

PATIENT
  Sex: Male

DRUGS (6)
  1. ZANTAC [Suspect]
     Active Substance: RANITIDINE HYDROCHLORIDE
     Indication: Gastrooesophageal reflux disease
     Dosage: 75 MG, 2-3X/DAILY
     Route: 065
     Dates: start: 198509, end: 199006
  2. ZANTAC [Suspect]
     Active Substance: RANITIDINE HYDROCHLORIDE
     Indication: Gastrooesophageal reflux disease
     Dosage: 75 MG, 2-3X/DAILY
     Route: 065
     Dates: start: 198509, end: 199006
  3. RANITIDINE [Suspect]
     Active Substance: RANITIDINE
     Indication: Gastrooesophageal reflux disease
     Dosage: 75 MG, 2-3X/DAILY
     Route: 065
     Dates: start: 198509, end: 199006
  4. RANITIDINE [Suspect]
     Active Substance: RANITIDINE
     Indication: Gastrooesophageal reflux disease
     Dosage: 75 MG, 2-3X/DAILY
     Route: 065
     Dates: start: 198509, end: 199006
  5. RANITIDINE [Suspect]
     Active Substance: RANITIDINE
     Indication: Gastrooesophageal reflux disease
     Dosage: 75 MG,2-3X/DAILY
     Route: 065
     Dates: start: 198509, end: 199006
  6. RANITIDINE [Suspect]
     Active Substance: RANITIDINE
     Indication: Gastrooesophageal reflux disease
     Dosage: 75 MG, 2-3X/DAILY
     Route: 065
     Dates: start: 198509, end: 199006

REACTIONS (2)
  - Prostate cancer [Unknown]
  - Thyroid cancer [Unknown]
